FAERS Safety Report 9379423 (Version 2)
Quarter: 2013Q3

REPORT INFORMATION
  Report Type: Spontaneous
  Country: US (occurrence: US)
  Receive Date: 20130702
  Receipt Date: 20130705
  Transmission Date: 20140515
  Serious: Yes (Death)
  Sender: FDA-Public Use
  Company Number: US-PFIZER INC-2013195306

PATIENT
  Age: 76 Year
  Sex: Male

DRUGS (1)
  1. RAPAMUNE [Suspect]
     Indication: LIVER TRANSPLANT
     Dosage: 0.5MG, EVERY OTHER DAY
     Dates: start: 20100722

REACTIONS (2)
  - Death [Fatal]
  - Off label use [Unknown]
